FAERS Safety Report 5808633-2 (Version None)
Quarter: 2008Q3

REPORT INFORMATION
  Report Type: 
  Country: None (occurrence: None)
  Receive Date: 20080714
  Receipt Date: 20080708
  Transmission Date: 20090109
  Serious: Yes (Other)
  Sender: FDA-Public Use
  Company Number: CA-AMGEN-QUU290268

PATIENT
  Sex: Female
  Weight: 58 kg

DRUGS (4)
  1. NEUPOGEN [Suspect]
     Indication: CHEMOTHERAPY
     Route: 058
     Dates: start: 20080608, end: 20080612
  2. FLUOROURACIL [Concomitant]
     Dates: start: 20080606
  3. EPIRUBICIN [Concomitant]
     Dates: start: 20080606
  4. CYCLOPHOSPHAMIDE [Concomitant]
     Dates: start: 20080606

REACTIONS (1)
  - ERYTHEMA NODOSUM [None]
